FAERS Safety Report 25526765 (Version 1)
Quarter: 2025Q3

REPORT INFORMATION
  Report Type: Spontaneous
  Country: GB (occurrence: GB)
  Receive Date: 20250707
  Receipt Date: 20250707
  Transmission Date: 20251020
  Serious: Yes (Death, Hospitalization, Other)
  Sender: MERCK SHARP & DOHME LLC
  Company Number: None

PATIENT
  Age: 79 Year
  Sex: Female

DRUGS (6)
  1. PEMBROLIZUMAB [Suspect]
     Active Substance: PEMBROLIZUMAB
     Indication: Adjuvant therapy
     Dates: start: 20250506
  2. ATENOLOL [Concomitant]
     Active Substance: ATENOLOL
  3. ACETAMINOPHEN [Concomitant]
     Active Substance: ACETAMINOPHEN
  4. ROSUVASTATIN [Concomitant]
     Active Substance: ROSUVASTATIN
  5. OMEPRAZOLE [Concomitant]
     Active Substance: OMEPRAZOLE
  6. FELODIPINE [Concomitant]
     Active Substance: FELODIPINE

REACTIONS (5)
  - Myositis-like syndrome [Not Recovered/Not Resolved]
  - Dyspnoea [Unknown]
  - Myocarditis [Fatal]
  - Respiratory failure [Unknown]
  - Immune-mediated myasthenia gravis [Not Recovered/Not Resolved]

NARRATIVE: CASE EVENT DATE: 20250525
